FAERS Safety Report 5124797-0 (Version None)
Quarter: 2006Q4

REPORT INFORMATION
  Report Type: 
  Country: None (occurrence: None)
  Receive Date: 20061011
  Receipt Date: 20060621
  Transmission Date: 20070319
  Serious: Yes (Other)
  Sender: FDA-Public Use
  Company Number: US-ROCHE-452533

PATIENT
  Age: 34 Year
  Sex: Female

DRUGS (3)
  1. ACCUTANE [Suspect]
     Indication: ACNE
     Route: 048
     Dates: end: 20040215
  2. ACCUTANE [Suspect]
     Dosage: STOP DATE REPORTED AS AUG/SEP 2005.
     Route: 048
     Dates: start: 20050615, end: 20050915
  3. CONTRACEPTIVE [Concomitant]
     Indication: CONTRACEPTION
     Dosage: REPORTED AS BIRTH CONTROL PILLS.

REACTIONS (2)
  - NO ADVERSE EFFECT [None]
  - PREGNANCY [None]
